FAERS Safety Report 8784120 (Version 1)
Quarter: 2012Q4

REPORT INFORMATION
  Report Type: 
  Country: US (occurrence: None)
  Receive Date: 20120906
  Receipt Date: 20120906
  Transmission Date: 20130627
  Serious: Yes (Hospitalization)
  Sender: FDA-Public Use
  Company Number: None

PATIENT
  Sex: Female
  Weight: 70 kg

DRUGS (3)
  1. FLUOROURACIL [Suspect]
     Dates: end: 20120814
  2. BEVACIZUMAB [Suspect]
     Dates: end: 20120814
  3. LEUCOVORIN CALCIUM [Suspect]
     Dates: end: 20120814

REACTIONS (10)
  - Sinus bradycardia [None]
  - Electrocardiogram ST segment depression [None]
  - Electrocardiogram T wave abnormal [None]
  - Coronary artery stenosis [None]
  - Chest pain [None]
  - Nausea [None]
  - Vomiting [None]
  - Cold sweat [None]
  - Haematoma [None]
  - Hyperhidrosis [None]
